FAERS Safety Report 7417398-2 (Version None)
Quarter: 2011Q2

REPORT INFORMATION
  Report Type: 
  Country: None (occurrence: None)
  Receive Date: 20110415
  Receipt Date: 20110412
  Transmission Date: 20111010
  Serious: Yes (Hospitalization, Other)
  Sender: FDA-Public Use
  Company Number: US-BRISTOL-MYERS SQUIBB COMPANY-15129232

PATIENT
  Sex: Male

DRUGS (1)
  1. ONGLYZA [Suspect]

REACTIONS (2)
  - OEDEMA [None]
  - LIP SWELLING [None]
